FAERS Safety Report 16423858 (Version 2)
Quarter: 2019Q2

REPORT INFORMATION
  Report Type: Spontaneous
  Country: US (occurrence: US)
  Receive Date: 20190613
  Receipt Date: 20190625
  Transmission Date: 20190711
  Serious: Yes (Other)
  Sender: FDA-Public Use
  Company Number: US-UNITED THERAPEUTICS-UNT-2019-010125

PATIENT
  Age: 51 Year
  Sex: Female
  Weight: 96.15 kg

DRUGS (2)
  1. OPSUMIT [Concomitant]
     Active Substance: MACITENTAN
     Indication: PRODUCT USED FOR UNKNOWN INDICATION
     Dosage: UNK
     Route: 065
  2. TYVASO [Suspect]
     Active Substance: TREPROSTINIL
     Indication: PULMONARY ARTERIAL HYPERTENSION
     Dosage: 18-54 ?G, QID
     Dates: start: 20190408

REACTIONS (4)
  - Oropharyngeal blistering [Unknown]
  - Leukoplakia oral [Unknown]
  - Oropharyngeal discomfort [Unknown]
  - Candida infection [Unknown]

NARRATIVE: CASE EVENT DATE: 20190606
